FAERS Safety Report 7929976-2 (Version None)
Quarter: 2011Q4

REPORT INFORMATION
  Report Type: 
  Country: None (occurrence: None)
  Receive Date: 20111118
  Receipt Date: 20111118
  Transmission Date: 20120403
  Serious: Yes (Life-Threatening)
  Sender: FDA-Public Use
  Company Number: None

PATIENT
  Age: 59 Year
  Sex: Female
  Weight: 83.4619 kg

DRUGS (3)
  1. DIETHYLPROPION HCL [Suspect]
     Indication: WEIGHT CONTROL
     Dosage: 2TAB TWICE AT DAY 11 AM- 5 PM BUCCAL
     Route: 002
     Dates: start: 20111012, end: 20111012
  2. THERMOGENIC A N/A DRGAWEIGHTLOSS LPE-MEDS [Suspect]
     Indication: WEIGHT CONTROL
     Dosage: 1 CAPSULM TWICE AT DAY 11AM-5 PM BUCCAL
     Route: 002
     Dates: start: 20111012, end: 20111012
  3. STABILITE B - DICYCLOMINE [Concomitant]

REACTIONS (3)
  - HEADACHE [None]
  - BLOOD PRESSURE INCREASED [None]
  - BURNING SENSATION [None]
